FAERS Safety Report 9911938 (Version 2)
Quarter: 2014Q1

REPORT INFORMATION
  Report Type: Spontaneous
  Country: US (occurrence: US)
  Receive Date: 20140219
  Receipt Date: 20140219
  Transmission Date: 20141002
  Serious: No
  Sender: FDA-Public Use
  Company Number: US-MYLANLABS-2013S1021876

PATIENT
  Age: 9 Month
  Sex: Male

DRUGS (1)
  1. EPIPEN JR [Suspect]
     Indication: FOOD ALLERGY
     Dates: start: 201309, end: 201309

REACTIONS (2)
  - Expired drug administered [Recovered/Resolved]
  - No adverse event [Recovered/Resolved]
